FAERS Safety Report 19560503 (Version 1)
Quarter: 2021Q3

REPORT INFORMATION
  Report Type: Spontaneous
  Country: US (occurrence: US)
  Receive Date: 20210714
  Receipt Date: 20210714
  Transmission Date: 20211014
  Serious: No
  Sender: FDA-Public Use
  Company Number: US-SK LIFE SCIENCE, INC-SKPVG-2020-000089

PATIENT

DRUGS (1)
  1. XCOPRI [Suspect]
     Active Substance: CENOBAMATE
     Indication: SEIZURE
     Dosage: 12.5 MILLIGRAM, QD, ONE TABLET
     Route: 048
     Dates: end: 20200722

REACTIONS (3)
  - Headache [Unknown]
  - Hypersomnia [Unknown]
  - Vision blurred [Unknown]

NARRATIVE: CASE EVENT DATE: 20200722
